FAERS Safety Report 8500358-8 (Version None)
Quarter: 2012Q3

REPORT INFORMATION
  Report Type: 
  Country: None (occurrence: None)
  Receive Date: 20120710
  Receipt Date: 20120625
  Transmission Date: 20120928
  Serious: No
  Sender: FDA-Public Use
  Company Number: US-ASTRAZENECA-2010SE33705

PATIENT
  Age: 48 Year
  Sex: Female
  Weight: 60.8 kg

DRUGS (7)
  1. SEROQUEL [Suspect]
     Route: 048
     Dates: start: 20080101
  2. SEROQUEL [Suspect]
     Route: 048
  3. NEXIUM [Suspect]
     Route: 048
  4. KLONOPIN [Concomitant]
  5. DIOVAN [Concomitant]
  6. SEROQUEL [Suspect]
     Indication: BIPOLAR DISORDER
     Route: 048
  7. DULOXETIME HYDROCHLORIDE [Concomitant]

REACTIONS (6)
  - LETHARGY [None]
  - INTENTIONAL DRUG MISUSE [None]
  - STRESS [None]
  - MALAISE [None]
  - HAEMORRHAGE [None]
  - SOMNOLENCE [None]
